FAERS Safety Report 19063768 (Version 1)
Quarter: 2021Q1

REPORT INFORMATION
  Report Type: Report from Study
  Country: BR (occurrence: BR)
  Receive Date: 20210326
  Receipt Date: 20210326
  Transmission Date: 20210420
  Serious: Yes (Hospitalization, Other)
  Sender: FDA-Public Use
  Company Number: BR-UCBSA-2021012915

PATIENT
  Age: 38 Year
  Sex: Female
  Weight: 82 kg

DRUGS (10)
  1. CENTRAVIM [CYANOCOBALAMIN;PYRIDOXINE HYDROCHLORIDE;THIAMINE HYDROCHLOR [Concomitant]
     Indication: ENDOMETRIOSIS
     Dosage: UNK
     Route: 061
  2. MIRENA [Concomitant]
     Active Substance: LEVONORGESTREL
     Indication: ENDOMETRIOSIS
     Dosage: UNK
     Dates: start: 2016
  3. DIPIRONA [Concomitant]
     Active Substance: METAMIZOLE
     Indication: HYPOAESTHESIA
     Dosage: 1 DOSAGE FORM
     Route: 042
  4. PREGABALINA [Concomitant]
     Active Substance: PREGABALIN
     Indication: PAIN IN EXTREMITY
     Dosage: 2 DOSAGE FORM, ONCE DAILY (QD)
     Route: 048
  5. PREGABALINA [Concomitant]
     Active Substance: PREGABALIN
     Indication: HYPOAESTHESIA
  6. DIENOGESTE [Concomitant]
     Indication: ENDOMETRIOSIS
     Dosage: 1 DOSAGE FORM, ONCE DAILY (QD)
     Route: 061
  7. CELEBRA [Concomitant]
     Active Substance: CELECOXIB
     Indication: HYPOAESTHESIA
  8. CERTOLIZUMAB PEGOL ASP [Suspect]
     Active Substance: CERTOLIZUMAB PEGOL
     Indication: ANKYLOSING SPONDYLITIS
     Dosage: UNK
     Route: 058
     Dates: start: 202003
  9. CELEBRA [Concomitant]
     Active Substance: CELECOXIB
     Indication: PAIN IN EXTREMITY
     Dosage: 1 DOSAGE FORM, ONCE DAILY (QD)
     Route: 048
  10. TRAMAL [Concomitant]
     Active Substance: TRAMADOL
     Indication: HYPOAESTHESIA
     Dosage: 1 DOSAGE FORM, UNK
     Route: 042

REACTIONS (6)
  - Vomiting [Not Recovered/Not Resolved]
  - Ankylosing spondylitis [Recovered/Resolved]
  - Obesity [Unknown]
  - Headache [Recovered/Resolved]
  - Malaise [Not Recovered/Not Resolved]
  - Hypotension [Not Recovered/Not Resolved]

NARRATIVE: CASE EVENT DATE: 202011
